FAERS Safety Report 19924972 (Version 1)
Quarter: 2021Q4

REPORT INFORMATION
  Report Type: Spontaneous
  Country: CN (occurrence: CN)
  Receive Date: 20211006
  Receipt Date: 20211006
  Transmission Date: 20220303
  Serious: Yes (Other)
  Sender: FDA-Public Use
  Company Number: CN-PFIZER INC-202101275802

PATIENT
  Age: 23 Year
  Sex: Female
  Weight: 54 kg

DRUGS (3)
  1. METHOTREXATE [Suspect]
     Active Substance: METHOTREXATE
     Indication: Therapeutic procedure
     Dosage: 45 MG, 1X/DAY
     Route: 050
     Dates: start: 20210916, end: 20210916
  2. MEPERIDINE HYDROCHLORIDE [Suspect]
     Active Substance: MEPERIDINE HYDROCHLORIDE
     Indication: Analgesic therapy
     Dosage: 100 MG, 1X/DAY
     Route: 030
     Dates: start: 20210916, end: 20210916
  3. PAPAVERINE HCL [Concomitant]
     Indication: Vasospasm
     Dosage: 30 MG, 1X/DAY
     Dates: start: 20210916, end: 20210916

REACTIONS (4)
  - Nausea [Recovered/Resolved]
  - Vomiting [Recovered/Resolved]
  - Insomnia [Unknown]
  - Decreased appetite [Unknown]

NARRATIVE: CASE EVENT DATE: 20210917
